FAERS Safety Report 12919742 (Version 1)
Quarter: 2016Q4

REPORT INFORMATION
  Report Type: Spontaneous
  Country: GB (occurrence: GB)
  Receive Date: 20161107
  Receipt Date: 20161107
  Transmission Date: 20170207
  Serious: Yes (Other)
  Sender: FDA-Public Use
  Company Number: GB-BAYER-2016-210515

PATIENT
  Sex: Male

DRUGS (7)
  1. SORAFENIB (RAF KINASE INHIBITOR) [Suspect]
     Active Substance: SORAFENIB
     Dosage: UNK
  2. CYTARABINE. [Suspect]
     Active Substance: CYTARABINE
     Route: 064
  3. G-CSF [Suspect]
     Active Substance: GRANULOCYTE COLONY-STIMULATING FACTOR NOS
  4. SORAFENIB (RAF KINASE INHIBITOR) [Suspect]
     Active Substance: SORAFENIB
     Dosage: AT 30 WEEKS GESTATION MOTHER RECEIVED 400MG TWICE DAILY ORAL FOR AML
     Route: 064
  5. AZACITIDINE. [Suspect]
     Active Substance: AZACITIDINE
     Dosage: AT 30 WEEKS GESTATION MOTHER RECEIVED 75 MG/M2 FOR 7 DAYS SUBCUTANEOUSLY FOR AML
     Route: 064
  6. FLUDARABINE [Suspect]
     Active Substance: FLUDARABINE PHOSPHATE
     Route: 064
  7. DAUNORUBICIN [Suspect]
     Active Substance: DAUNORUBICIN
     Route: 064

REACTIONS (3)
  - Premature baby [None]
  - Low birth weight baby [None]
  - Foetal exposure timing unspecified [None]
